FAERS Safety Report 10198906 (Version 1)
Quarter: 2014Q2

REPORT INFORMATION
  Report Type: Spontaneous
  Country: US (occurrence: US)
  Receive Date: 20140527
  Receipt Date: 20140527
  Transmission Date: 20141212
  Serious: No
  Sender: FDA-Public Use
  Company Number: US-NOVEN-13US007706

PATIENT
  Age: 10 Year
  Sex: Male

DRUGS (3)
  1. DAYTRANA [Suspect]
     Indication: ATTENTION DEFICIT/HYPERACTIVITY DISORDER
     Dosage: 25 MG TO 30MG, QD
     Route: 062
  2. DAYTRANA [Suspect]
     Dosage: 30MG X 2, ONCE
     Dates: start: 20130909, end: 20130909
  3. MIRTAZAPINE [Concomitant]
     Indication: ANXIETY
     Dosage: 15 MG, 1/4 TO 1/2 TAB QD
     Route: 048

REACTIONS (6)
  - Urinary tract infection [Not Recovered/Not Resolved]
  - Musculoskeletal pain [Not Recovered/Not Resolved]
  - Accidental overdose [Recovered/Resolved]
  - Abdominal pain upper [Not Recovered/Not Resolved]
  - Wrong technique in drug usage process [Recovered/Resolved]
  - Drug prescribing error [Not Recovered/Not Resolved]
